FAERS Safety Report 25606401 (Version 1)
Quarter: 2025Q3

REPORT INFORMATION
  Report Type: Spontaneous
  Country: RU (occurrence: RU)
  Receive Date: 20250725
  Receipt Date: 20250725
  Transmission Date: 20251020
  Serious: Yes (Other)
  Sender: ROCHE
  Company Number: RU-ROCHE-10000338921

PATIENT
  Sex: Female

DRUGS (5)
  1. TRASTUZUMAB [Suspect]
     Active Substance: TRASTUZUMAB
     Indication: Breast cancer metastatic
     Dosage: LOADING DOSE 8 MG/KG),
     Route: 042
     Dates: start: 202207, end: 202209
  2. TRASTUZUMAB [Suspect]
     Active Substance: TRASTUZUMAB
     Dosage: LOADING DOSE 8 MG/KG),
     Route: 042
     Dates: start: 202210, end: 202305
  3. ADO-TRASTUZUMAB EMTANSINE [Suspect]
     Active Substance: ADO-TRASTUZUMAB EMTANSINE
     Indication: Breast cancer metastatic
     Route: 042
  4. DOCETAXEL [Suspect]
     Active Substance: DOCETAXEL
     Indication: Breast cancer metastatic
     Route: 042
     Dates: start: 202207, end: 202209
  5. CYCLOPHOSPHAMIDE [Suspect]
     Active Substance: CYCLOPHOSPHAMIDE
     Indication: Breast cancer metastatic
     Route: 042
     Dates: start: 202207, end: 202209

REACTIONS (15)
  - Disease progression [Unknown]
  - Hepatic neoplasm [Unknown]
  - Haemangioma of liver [Unknown]
  - Hepatic cyst [Unknown]
  - Renal cyst [Unknown]
  - Focal nodular hyperplasia [Unknown]
  - Hepatic mass [Unknown]
  - Gallbladder volvulus [Unknown]
  - Nephroptosis [Unknown]
  - Granuloma [Unknown]
  - Seroma [Unknown]
  - Lymphoid tissue hyperplasia [Unknown]
  - Metastases to liver [Unknown]
  - Lung neoplasm [Unknown]
  - Metastases to lung [Unknown]
